FAERS Safety Report 17118427 (Version 2)
Quarter: 2020Q1

REPORT INFORMATION
  Report Type: Spontaneous
  Country: IT (occurrence: IT)
  Receive Date: 20191205
  Receipt Date: 20200206
  Transmission Date: 20200409
  Serious: Yes (Hospitalization)
  Sender: FDA-Public Use
  Company Number: IT-ALSI-201900502

PATIENT
  Age: 59 Year
  Sex: Male

DRUGS (1)
  1. OXYGEN. [Suspect]
     Active Substance: OXYGEN
     Indication: CHRONIC RESPIRATORY FAILURE
     Route: 055

REACTIONS (3)
  - Burns second degree [Recovered/Resolved]
  - Accident [Recovered/Resolved]
  - Intentional product misuse [Recovered/Resolved]
